FAERS Safety Report 9027010 (Version 4)
Quarter: 2013Q2

REPORT INFORMATION
  Report Type: Spontaneous
  Country: US (occurrence: US)
  Receive Date: 20130123
  Receipt Date: 20130422
  Transmission Date: 20140414
  Serious: Yes (Hospitalization, Other)
  Sender: FDA-Public Use
  Company Number: US-JNJFOC-20121102148

PATIENT
  Age: 34 Year
  Sex: Female

DRUGS (6)
  1. TOPAMAX [Suspect]
     Indication: DEPRESSION
     Dosage: 100 MG AND 200 MG
     Route: 048
     Dates: start: 20070703, end: 20080912
  2. TOPAMAX [Suspect]
     Indication: MIGRAINE
     Dosage: 100 MG AND 200 MG
     Route: 048
     Dates: start: 20070703, end: 20080912
  3. WELLBUTRIN XL [Suspect]
     Indication: PRODUCT USED FOR UNKNOWN INDICATION
     Route: 048
  4. LAMOTRIGINE [Suspect]
     Indication: PRODUCT USED FOR UNKNOWN INDICATION
     Route: 048
  5. TRAZODONE [Suspect]
     Indication: PRODUCT USED FOR UNKNOWN INDICATION
     Route: 048
  6. KLONOPIN [Suspect]
     Indication: ANXIETY
     Dosage: AS NEEDED
     Route: 048

REACTIONS (2)
  - Exposure during pregnancy [Recovered/Resolved]
  - Premature labour [Recovered/Resolved]
